FAERS Safety Report 5639545-5 (Version None)
Quarter: 2008Q1

REPORT INFORMATION
  Report Type: 
  Country: None (occurrence: None)
  Receive Date: 20080226
  Receipt Date: 20080218
  Transmission Date: 20080703
  Serious: Yes (Other)
  Sender: FDA-Public Use
  Company Number: JP-MERCK-0802USA04805

PATIENT
  Age: 65 Year
  Sex: Male

DRUGS (3)
  1. PEPCID [Suspect]
     Route: 051
     Dates: start: 20070301, end: 20070401
  2. [THERAPY UNSPECIFIED] [Suspect]
     Route: 065
  3. [THERAPY UNSPECIFIED] [Suspect]
     Route: 065

REACTIONS (1)
  - DRUG ERUPTION [None]
